FAERS Safety Report 11804594 (Version 1)
Quarter: 2015Q4

REPORT INFORMATION
  Report Type: Spontaneous
  Country: JP (occurrence: JP)
  Receive Date: 20151204
  Receipt Date: 20151204
  Transmission Date: 20160305
  Serious: Yes (Other)
  Sender: FDA-Public Use
  Company Number: JP-BRISTOL-MYERS SQUIBB COMPANY-BMS-2015-083860

PATIENT
  Sex: Male

DRUGS (7)
  1. FEBURIC [Suspect]
     Active Substance: FEBUXOSTAT
     Indication: GOUT
     Dosage: UNK, QD
     Route: 048
  2. AMLODIPINE [Suspect]
     Active Substance: AMLODIPINE BESYLATE
     Indication: HYPERTENSION
     Dosage: UNK, QD
     Route: 048
  3. DICLOFENAC NA [Suspect]
     Active Substance: DICLOFENAC SODIUM
     Indication: GOUT
     Dosage: UNK, PRN
     Route: 048
  4. CIBENOL [Suspect]
     Active Substance: CIFENLINE
     Indication: ARRHYTHMIA
     Route: 048
  5. REBAMIPIDE [Suspect]
     Active Substance: REBAMIPIDE
     Indication: PRODUCT USED FOR UNKNOWN INDICATION
     Dosage: UNK, PRN
     Route: 048
  6. ATORVASTATIN CALCIUM. [Suspect]
     Active Substance: ATORVASTATIN CALCIUM
     Indication: HYPERCHOLESTEROLAEMIA
     Dosage: UNK, QD
     Route: 048
  7. ELIQUIS [Suspect]
     Active Substance: APIXABAN
     Indication: CEREBROVASCULAR ACCIDENT PROPHYLAXIS
     Dosage: UNK, BID
     Route: 048
     Dates: start: 20151121

REACTIONS (2)
  - Arrhythmia [Unknown]
  - Anal haemorrhage [Recovered/Resolved]

NARRATIVE: CASE EVENT DATE: 201511
